FAERS Safety Report 10196851 (Version 1)
Quarter: 2014Q2

REPORT INFORMATION
  Report Type: Spontaneous
  Country: IN (occurrence: IN)
  Receive Date: 20140527
  Receipt Date: 20140527
  Transmission Date: 20141212
  Serious: Yes (Hospitalization)
  Sender: FDA-Public Use
  Company Number: IN-MYLANLABS-2014S1011470

PATIENT
  Age: 18 Year
  Sex: Female
  Weight: 58 kg

DRUGS (7)
  1. DICYCLOMINE [Suspect]
     Indication: ENTEROCOLITIS
     Route: 030
  2. DICYCLOMINE [Suspect]
     Indication: DRUG ABUSE
     Route: 030
  3. DICYCLOMINE [Suspect]
     Indication: OFF LABEL USE
     Route: 030
  4. DICYCLOMINE [Suspect]
     Indication: ENTEROCOLITIS
     Dosage: 20-40 MG ONCE TO THRICE DAILY 3-5 TIMES PER WEEK THROUGHOUT, OF LATE THE FREQUENCY INCREASED
     Route: 030
  5. DICYCLOMINE [Suspect]
     Indication: DRUG ABUSE
     Dosage: 20-40 MG ONCE TO THRICE DAILY 3-5 TIMES PER WEEK THROUGHOUT, OF LATE THE FREQUENCY INCREASED
     Route: 030
  6. DICYCLOMINE [Suspect]
     Indication: OFF LABEL USE
     Dosage: 20-40 MG ONCE TO THRICE DAILY 3-5 TIMES PER WEEK THROUGHOUT, OF LATE THE FREQUENCY INCREASED
     Route: 030
  7. AZITHROMYCIN [Concomitant]
     Indication: UPPER RESPIRATORY TRACT INFECTION
     Dosage: 500 MG
     Route: 048

REACTIONS (35)
  - Intentional overdose [Recovered/Resolved]
  - Toxicity to various agents [Recovered/Resolved]
  - Drug abuse [Recovered/Resolved]
  - Confusional state [Recovered/Resolved]
  - Pyrexia [Recovered/Resolved]
  - Asthenia [Recovered/Resolved]
  - Palpitations [Recovered/Resolved]
  - Vision blurred [Recovered/Resolved]
  - Dry eye [Recovered/Resolved]
  - Constipation [Recovered/Resolved]
  - Oliguria [Recovered/Resolved]
  - Hypohidrosis [Recovered/Resolved]
  - Dry skin [Recovered/Resolved]
  - Dysarthria [Recovered/Resolved]
  - Dysphagia [Recovered/Resolved]
  - Euphoric mood [Recovered/Resolved]
  - Hallucination [Recovered/Resolved]
  - Fatigue [Recovered/Resolved]
  - Amnesia [Recovered/Resolved]
  - Disinhibition [Recovered/Resolved]
  - Stereotypy [Recovered/Resolved]
  - Agitation [Recovered/Resolved]
  - Drug dependence [Recovered/Resolved]
  - Withdrawal syndrome [Recovered/Resolved]
  - Nervousness [Recovered/Resolved]
  - Anxiety [Recovered/Resolved]
  - Hyperhidrosis [Recovered/Resolved]
  - Depression [Recovered/Resolved]
  - Decreased appetite [Recovered/Resolved]
  - Withdrawal hypertension [Recovered/Resolved]
  - Disorientation [Recovered/Resolved]
  - Ataxia [Recovered/Resolved]
  - Insomnia [Recovered/Resolved]
  - Tremor [Recovered/Resolved]
  - Abdominal pain [Recovered/Resolved]
